FAERS Safety Report 16372753 (Version 1)
Quarter: 2019Q2

REPORT INFORMATION
  Report Type: Spontaneous
  Country: US (occurrence: US)
  Receive Date: 20190530
  Receipt Date: 20190530
  Transmission Date: 20190711
  Serious: Yes (Hospitalization)
  Sender: FDA-Public Use
  Company Number: US-BOIRON INC.-2019BOR00061

PATIENT
  Age: 3 Year
  Sex: Female
  Weight: 13.61 kg

DRUGS (2)
  1. PULSE VITAMINS [Concomitant]
     Dosage: UNK, AS NEEDED ^HERE AND THERE^
  2. BELLADONNA 6C [Suspect]
     Active Substance: ATROPA BELLADONNA\HOMEOPATHICS
     Indication: PYREXIA
     Dosage: 5 PELLETS, ONCE
     Route: 048
     Dates: start: 20190423, end: 20190423

REACTIONS (4)
  - Respiration abnormal [Recovering/Resolving]
  - Dyspnoea [Recovering/Resolving]
  - Ileus [Recovering/Resolving]
  - Urinary retention [Recovered/Resolved]

NARRATIVE: CASE EVENT DATE: 201904
